FAERS Safety Report 9487393 (Version 2)
Quarter: 2013Q3

REPORT INFORMATION
  Report Type: Spontaneous
  Country: US (occurrence: US)
  Receive Date: 20130725
  Receipt Date: 20130725
  Transmission Date: 20140515
  Serious: Yes (Hospitalization)
  Sender: FDA-Public Use
  Company Number: US-GLAXOSMITHKLINE-A0737547A

PATIENT
  Age: 65 Year
  Sex: Female
  Weight: 72.7 kg

DRUGS (10)
  1. AVANDIA [Suspect]
     Indication: TYPE 2 DIABETES MELLITUS
     Dosage: 4MG TWICE PER DAY
     Route: 048
     Dates: start: 200406, end: 200708
  2. ACIPHEX [Concomitant]
  3. ATENOLOL [Concomitant]
  4. HCTZ [Concomitant]
  5. JANUVIA [Concomitant]
  6. LOVASTATIN [Concomitant]
  7. NYSTATIN [Concomitant]
  8. PAROXETINE [Concomitant]
  9. PREMARIN [Concomitant]
  10. PROTONIX [Concomitant]

REACTIONS (1)
  - Cardiac failure congestive [Not Recovered/Not Resolved]
